FAERS Safety Report 9768340 (Version 1)
Quarter: 2013Q4

REPORT INFORMATION
  Report Type: Spontaneous
  Country: GB (occurrence: GB)
  Receive Date: 20131217
  Receipt Date: 20131217
  Transmission Date: 20140711
  Serious: Yes (Hospitalization, Other)
  Sender: FDA-Public Use
  Company Number: CHPA2013GB018444

PATIENT
  Sex: Female

DRUGS (1)
  1. OTRIVIN [Suspect]

REACTIONS (1)
  - Hypersensitivity [Unknown]
